FAERS Safety Report 25493102 (Version 1)
Quarter: 2025Q2

REPORT INFORMATION
  Report Type: Spontaneous
  Country: US (occurrence: US)
  Receive Date: 20250630
  Receipt Date: 20250630
  Transmission Date: 20250716
  Serious: No
  Sender: MYLAN
  Company Number: US-MYLANLABS-2025M1051396

PATIENT
  Age: 20 Year
  Sex: Male

DRUGS (4)
  1. PHENYTOIN [Suspect]
     Active Substance: PHENYTOIN
     Indication: Seizure
     Dosage: 400 MILLIGRAM, QD (A DAY)
     Dates: start: 2010
  2. PHENYTOIN [Suspect]
     Active Substance: PHENYTOIN
     Dosage: 400 MILLIGRAM, QD (A DAY)
     Route: 048
     Dates: start: 2010
  3. PHENYTOIN [Suspect]
     Active Substance: PHENYTOIN
     Dosage: 400 MILLIGRAM, QD (A DAY)
     Route: 048
     Dates: start: 2010
  4. PHENYTOIN [Suspect]
     Active Substance: PHENYTOIN
     Dosage: 400 MILLIGRAM, QD (A DAY)
     Dates: start: 2010

REACTIONS (3)
  - Adverse event [Recovered/Resolved]
  - Drug ineffective [Unknown]
  - Product substitution issue [Unknown]

NARRATIVE: CASE EVENT DATE: 20100101
